FAERS Safety Report 13875410 (Version 2)
Quarter: 2017Q3

REPORT INFORMATION
  Report Type: Spontaneous
  Country: JP (occurrence: JP)
  Receive Date: 20170817
  Receipt Date: 20170920
  Transmission Date: 20171127
  Serious: Yes (Other)
  Sender: FDA-Public Use
  Company Number: JP-SUN PHARMACEUTICAL INDUSTRIES LTD-2017RR-147642

PATIENT
  Age: 69 Year
  Sex: Female

DRUGS (2)
  1. IMATINIB [Suspect]
     Active Substance: IMATINIB
     Dosage: UNK
     Route: 065
  2. IMATINIB [Suspect]
     Active Substance: IMATINIB
     Indication: METASTASIS
     Dosage: 300 MG, DAILY
     Route: 048
     Dates: start: 201208, end: 201308

REACTIONS (4)
  - Disease recurrence [Unknown]
  - Muscle spasms [Unknown]
  - Cerebral infarction [Unknown]
  - Joint ankylosis [Unknown]
